FAERS Safety Report 8974558 (Version 2)
Quarter: 2012Q4

REPORT INFORMATION
  Report Type: 
  Country: JP (occurrence: JP)
  Receive Date: 20121220
  Receipt Date: 20121228
  Transmission Date: 20130627
  Serious: Yes (Life-Threatening, Hospitalization)
  Sender: FDA-Public Use
  Company Number: JP-B.I. PHARMACEUTICALS,INC./RIDGEFIELD-2012-BI-00218NB

PATIENT
  Age: 71 Year
  Sex: Female
  Weight: 60 kg

DRUGS (8)
  1. MIRAPEX [Suspect]
     Indication: PARKINSON^S DISEASE
     Dosage: 3.375 mg
     Route: 048
     Dates: start: 20120927, end: 20121015
  2. MIRAPEX [Suspect]
     Dosage: 3.375 mg
     Route: 048
  3. TRERIEF [Suspect]
     Indication: PARKINSON^S DISEASE
     Dosage: 25 mg
     Route: 048
     Dates: start: 201005, end: 20121003
  4. ARTANE [Suspect]
     Indication: PARKINSON^S DISEASE
     Dosage: 4 mg
     Route: 048
     Dates: start: 2005, end: 20121003
  5. MENESIT [Concomitant]
     Indication: PARKINSON^S DISEASE
     Dosage: 400 mg
     Route: 048
  6. LANDSEN [Concomitant]
     Dosage: 1 mg
     Route: 048
  7. EUGLUCON [Concomitant]
     Dosage: 0.125 mg
     Route: 048
  8. SPIROPENT [Concomitant]
     Dosage: 10 mcg
     Route: 048

REACTIONS (1)
  - Neuroleptic malignant syndrome [Recovered/Resolved]
